FAERS Safety Report 13638838 (Version 3)
Quarter: 2017Q2

REPORT INFORMATION
  Report Type: Spontaneous
  Country: US (occurrence: US)
  Receive Date: 20170609
  Receipt Date: 20170630
  Transmission Date: 20170830
  Serious: Yes (Death, Hospitalization, Other)
  Sender: FDA-Public Use
  Company Number: US-BRISTOL-MYERS SQUIBB COMPANY-BMS-2017-050387

PATIENT
  Age: 70 Year
  Sex: Male

DRUGS (2)
  1. OPDIVO [Suspect]
     Active Substance: NIVOLUMAB
     Indication: OESOPHAGEAL CARCINOMA
     Dosage: 240 MG, Q2WK
     Route: 042
     Dates: start: 20170509, end: 20170523
  2. OPDIVO [Suspect]
     Active Substance: NIVOLUMAB
     Indication: SQUAMOUS CELL CARCINOMA
     Route: 065

REACTIONS (2)
  - Product use in unapproved indication [Unknown]
  - Acute hepatic failure [Fatal]

NARRATIVE: CASE EVENT DATE: 20170509
